FAERS Safety Report 5096104-3 (Version None)
Quarter: 2006Q3

REPORT INFORMATION
  Report Type: 
  Country: None (occurrence: None)
  Receive Date: 20060831
  Receipt Date: 20060821
  Transmission Date: 20061208
  Serious: No
  Sender: FDA-Public Use
  Company Number: E3810-00166-SPO-US

PATIENT
  Sex: Female

DRUGS (1)
  1. ACIPHEX [Suspect]
     Dosage: 20 MG, ORAL
     Route: 048
     Dates: start: 20060101

REACTIONS (1)
  - CARDIAC FAILURE CONGESTIVE [None]
